FAERS Safety Report 6109185-2 (Version None)
Quarter: 2009Q1

REPORT INFORMATION
  Report Type: 
  Country: None (occurrence: None)
  Receive Date: 20090306
  Receipt Date: 20090306
  Transmission Date: 20090719
  Serious: Yes (Hospitalization)
  Sender: FDA-Public Use
  Company Number: None

PATIENT
  Sex: Female
  Weight: 52 kg

DRUGS (2)
  1. CISPLATIN [Suspect]
     Dosage: 114 MG
     Dates: end: 20090210
  2. NAVELBINE [Suspect]
     Dosage: 46 MG
     Dates: end: 20090217

REACTIONS (4)
  - DEHYDRATION [None]
  - DIZZINESS [None]
  - FALL [None]
  - VOMITING [None]
